FAERS Safety Report 17121155 (Version 1)
Quarter: 2019Q4

REPORT INFORMATION
  Report Type: Spontaneous
  Country: US (occurrence: US)
  Receive Date: 20191206
  Receipt Date: 20191206
  Transmission Date: 20200122
  Serious: No
  Sender: FDA-Public Use
  Company Number: US-UCBSA-2017025912

PATIENT
  Sex: Female

DRUGS (1)
  1. KEPPRA [Suspect]
     Active Substance: LEVETIRACETAM
     Indication: EPILEPSY
     Dosage: 500 MG, 2X/DAY (BID)
     Dates: start: 201309

REACTIONS (8)
  - Seizure [Unknown]
  - Speech disorder [Unknown]
  - Myoclonus [Unknown]
  - Dizziness [Unknown]
  - Malaise [Unknown]
  - Petit mal epilepsy [Unknown]
  - Gait inability [Unknown]
  - Nausea [Unknown]

NARRATIVE: CASE EVENT DATE: 2017
